FAERS Safety Report 21944339 (Version 1)
Quarter: 2023Q1

REPORT INFORMATION
  Report Type: Spontaneous
  Country: CL (occurrence: CL)
  Receive Date: 20230202
  Receipt Date: 20230202
  Transmission Date: 20230418
  Serious: Yes (Death)
  Sender: FDA-Public Use
  Company Number: CL-JNJFOC-20230155952

PATIENT

DRUGS (1)
  1. REMICADE [Suspect]
     Active Substance: INFLIXIMAB
     Indication: Colitis ulcerative
     Route: 064
     Dates: start: 20170805

REACTIONS (2)
  - Foetal cardiac arrest [Fatal]
  - Foetal exposure during pregnancy [Not Recovered/Not Resolved]
